FAERS Safety Report 8746929 (Version 4)
Quarter: 2014Q3

REPORT INFORMATION
  Report Type: Report from Study
  Country: MX (occurrence: MX)
  Receive Date: 20120827
  Receipt Date: 20140923
  Transmission Date: 20150326
  Serious: Yes (Other)
  Sender: FDA-Public Use
  Company Number: PHHY2012MX073676

PATIENT
  Sex: Female

DRUGS (4)
  1. RIVOTRIL [Concomitant]
     Active Substance: CLONAZEPAM
     Indication: EPILEPSY
     Dosage: 2 MG, BID
     Dates: start: 1988
  2. TRILEPTAL [Suspect]
     Active Substance: OXCARBAZEPINE
     Indication: EPILEPSY
     Dosage: 0.5 DF, BID (HALF TABLET IN THE MORNING AND HALF TABLET AT NIGHT)
     Route: 048
  3. ATEMPERATOR [Concomitant]
     Dosage: 600 MG, UNK
  4. ACLASTA [Suspect]
     Active Substance: ZOLEDRONIC ACID
     Indication: OSTEOPOROSIS
     Dosage: 1 UKN, ANNUALLY
     Route: 042
     Dates: start: 2012

REACTIONS (4)
  - Lower limb fracture [Recovered/Resolved]
  - Gastrooesophageal reflux disease [Recovering/Resolving]
  - Fall [Recovered/Resolved]
  - Oesophagitis [Recovering/Resolving]

NARRATIVE: CASE EVENT DATE: 2012
